FAERS Safety Report 5042418-2 (Version None)
Quarter: 2006Q2

REPORT INFORMATION
  Report Type: 
  Country: None (occurrence: None)
  Receive Date: 20060627
  Receipt Date: 20060621
  Transmission Date: 20061013
  Serious: Yes (Hospitalization)
  Sender: FDA-Public Use
  Company Number: ID-2006-016040

PATIENT
  Age: 52 Year
  Sex: Male
  Weight: 80 kg

DRUGS (3)
  1. ULTRAVIST 370 [Suspect]
     Indication: COMPUTERISED TOMOGRAM THORAX
     Dosage: SEE IMAGE, INTRAVENOUS
     Route: 042
     Dates: start: 20060327, end: 20060327
  2. BETA BLOCKING AGENTS [Concomitant]
  3. NITROGLYCERINE SPRAY [Concomitant]

REACTIONS (1)
  - CARDIAC ARREST [None]
